FAERS Safety Report 7134839-9 (Version None)
Quarter: 2010Q4

REPORT INFORMATION
  Report Type: 
  Country: None (occurrence: None)
  Receive Date: 20101130
  Receipt Date: 20101130
  Transmission Date: 20110411
  Serious: Yes (Life-Threatening, Hospitalization, Other)
  Sender: FDA-Public Use
  Company Number: None

PATIENT
  Age: 48 Year
  Sex: Female
  Weight: 70.3075 kg

DRUGS (1)
  1. LEVOXYL [Suspect]
     Dosage: ONE TABLET DAILY PO
     Route: 048
     Dates: start: 20101031, end: 20101122

REACTIONS (9)
  - ANXIETY [None]
  - BLOOD PRESSURE FLUCTUATION [None]
  - CHEST PAIN [None]
  - CONFUSIONAL STATE [None]
  - FACE OEDEMA [None]
  - FEELING ABNORMAL [None]
  - LETHARGY [None]
  - PRODUCT QUALITY ISSUE [None]
  - WEIGHT INCREASED [None]
